FAERS Safety Report 8957091 (Version 1)
Quarter: 2012Q4

REPORT INFORMATION
  Report Type: Spontaneous
  Country: US (occurrence: None)
  Receive Date: 20121130
  Receipt Date: 20121130
  Transmission Date: 20130627
  Serious: Yes (Other)
  Sender: FDA-Public Use
  Company Number: DSA_55159_2012

PATIENT
  Sex: Female
  Weight: 68.68 kg

DRUGS (19)
  1. XENAZINE 12.5 MG (NOT SPECIFIED) [Suspect]
     Indication: HUNTINGTON^S DISEASE
     Dates: end: 201104
  2. XENAZINE 12.5 MG (NOT SPECIFIED) [Suspect]
     Indication: HUNTINGTON^S DISEASE
     Route: 048
     Dates: start: 201104, end: 20120220
  3. XENAZINE 12.5 MG (NOT SPECIFIED) [Suspect]
     Indication: HUNTINGTON^S DISEASE
     Dates: start: 20120221
  4. SERTRALINE [Concomitant]
  5. OMEPRAZOLE [Concomitant]
  6. GEMFIBROZIL [Concomitant]
  7. ACETAMINOPHEN [Concomitant]
  8. DEPO-PROVERA [Concomitant]
  9. FLUTICASONE [Concomitant]
  10. VITAMINE D VOOR SENIOREN [Concomitant]
  11. PREMARIN [Concomitant]
  12. ALPRAZOLAM [Concomitant]
  13. DOXEPIN [Concomitant]
  14. CYCLOBENZAPRINE [Concomitant]
  15. HYDROXYZINE [Concomitant]
  16. A FEW PRN MEDS (ALL OTHER THERAPEUTIC PRODUCTS) [Concomitant]
  17. RISPERDAL [Concomitant]
  18. MIRTAZAPINE [Concomitant]
  19. HYDROCODONE BITARTRATE AND ACETAMINOPHEN [Concomitant]

REACTIONS (8)
  - Hyperhidrosis [None]
  - Pyrexia [None]
  - Retching [None]
  - Pruritus generalised [None]
  - Hot flush [None]
  - Muscle disorder [None]
  - Skin disorder [None]
  - Excoriation [None]
